FAERS Safety Report 22023532 (Version 1)
Quarter: 2023Q1

REPORT INFORMATION
  Report Type: Spontaneous
  Country: CN (occurrence: CN)
  Receive Date: 20230223
  Receipt Date: 20230223
  Transmission Date: 20230418
  Serious: Yes (Other)
  Sender: FDA-Public Use
  Company Number: None

PATIENT
  Age: 76 Year
  Sex: Female
  Weight: 35 kg

DRUGS (9)
  1. CYCLOPHOSPHAMIDE [Suspect]
     Active Substance: CYCLOPHOSPHAMIDE
     Indication: Diffuse large B-cell lymphoma
     Dosage: 0.5G, ONCE DAILY, DILUTED WITH 0.9% SODIUM CHLORIDE, DAY 1 AS PART OF MINI-CHOP REGIMEN
     Route: 041
     Dates: start: 20221217, end: 20221217
  2. SODIUM CHLORIDE [Suspect]
     Active Substance: SODIUM CHLORIDE
     Indication: Medication dilution
     Dosage: UNK, ONCE DAILY, DOSAGE FORM: INJECTION, DAY 1, USED TO DILUTE CYCLOPHOSPHAMIDE INJECTION 0.5G
     Route: 041
     Dates: start: 20221217, end: 20221217
  3. SODIUM CHLORIDE [Suspect]
     Active Substance: SODIUM CHLORIDE
     Dosage: 20 ML, ONCE DAILY, DOSAGE FORM: INJECTION, DAY 1, USED TO DILUTE VINDESINE INJECTION 3 MG
     Route: 042
     Dates: start: 20221217, end: 20221217
  4. SODIUM CHLORIDE [Suspect]
     Active Substance: SODIUM CHLORIDE
     Dosage: 50 ML, ONCE DAILY, DOSAGE FORM: INJECTION, DAY 1, MICROPUMP, USED TO DILUTE AMIFOSTINE INJECTION 0.4
     Route: 041
     Dates: start: 20221217, end: 20221217
  5. DEXTROSE [Suspect]
     Active Substance: DEXTROSE
     Indication: Medication dilution
     Dosage: 250 ML, DAY 1, USED TO DILUTE DOXOUBICIN LIPOSOME 30 MG
     Route: 041
     Dates: start: 20221217, end: 20221217
  6. AMIFOSTINE [Suspect]
     Active Substance: AMIFOSTINE
     Indication: Diffuse large B-cell lymphoma
     Dosage: 0.4G, ONCE DAILY, MICROPUMP INJECTION, DAY 1, DILUTED WITH 0.9% SODIUM CHLORIDE 50 ML
     Route: 041
     Dates: start: 20221217, end: 20221217
  7. VINDESINE SULFATE [Suspect]
     Active Substance: VINDESINE SULFATE
     Indication: Diffuse large B-cell lymphoma
     Dosage: 3 MG, ONCE DAILY, DAY 1, DILUTED WITH 0.9% SODIUM CHLORIDE 20 ML, AS PART OF MINI-CHOP REGIMEN
     Route: 042
     Dates: start: 20221217, end: 20221217
  8. DOXORUBICIN HYDROCHLORIDE [Suspect]
     Active Substance: DOXORUBICIN HYDROCHLORIDE
     Indication: Diffuse large B-cell lymphoma
     Dosage: 30 MG, DAY 1, DILUTED WITH 5% GLUCOSE 250 ML, AS PART OF MINI-CHOP REGIMEN
     Route: 041
     Dates: start: 20221217, end: 20221217
  9. PREDNISONE [Suspect]
     Active Substance: PREDNISONE
     Indication: Diffuse large B-cell lymphoma
     Dosage: UNK, AS PART OF MINI-CHOP
     Route: 065
     Dates: start: 20221217

REACTIONS (2)
  - White blood cell count decreased [Recovering/Resolving]
  - Haemoglobin decreased [Recovering/Resolving]

NARRATIVE: CASE EVENT DATE: 20221227
